FAERS Safety Report 9612015 (Version 2)
Quarter: 2013Q4

REPORT INFORMATION
  Report Type: Spontaneous
  Country: JP (occurrence: JP)
  Receive Date: 20131010
  Receipt Date: 20131010
  Transmission Date: 20140711
  Serious: Yes (Hospitalization, Other)
  Sender: FDA-Public Use
  Company Number: JP-ROCHE-1267630

PATIENT
  Age: 59 Year
  Sex: Female
  Weight: 54 kg

DRUGS (28)
  1. XELODA [Suspect]
     Indication: ADJUVANT THERAPY
     Route: 048
     Dates: start: 20101104, end: 20110331
  2. XELODA [Suspect]
     Indication: ADJUVANT THERAPY
     Route: 048
     Dates: start: 20120524, end: 20121018
  3. XELODA [Suspect]
     Indication: RECTAL CANCER METASTATIC
     Route: 048
     Dates: start: 20121204, end: 20121217
  4. XELODA [Suspect]
     Indication: RECTAL CANCER METASTATIC
     Route: 048
     Dates: start: 20121227, end: 20130109
  5. XELODA [Suspect]
     Indication: RECTAL CANCER METASTATIC
     Route: 048
     Dates: start: 20130117, end: 20130130
  6. XELODA [Suspect]
     Indication: RECTAL CANCER METASTATIC
     Route: 048
     Dates: start: 20130207, end: 20130220
  7. XELODA [Suspect]
     Indication: RECTAL CANCER METASTATIC
     Route: 048
     Dates: start: 20130307, end: 20130320
  8. XELODA [Suspect]
     Indication: RECTAL CANCER METASTATIC
     Route: 048
     Dates: start: 20130328, end: 20130410
  9. XELODA [Suspect]
     Indication: RECTAL CANCER METASTATIC
     Route: 048
     Dates: start: 20130418, end: 20130501
  10. XELODA [Suspect]
     Indication: RECTAL CANCER METASTATIC
     Route: 048
     Dates: start: 20130509, end: 20130522
  11. XELODA [Suspect]
     Indication: RECTAL CANCER METASTATIC
     Route: 048
     Dates: start: 20130530, end: 20130612
  12. XELODA [Suspect]
     Indication: RECTAL CANCER METASTATIC
     Route: 048
     Dates: start: 20130620, end: 20130703
  13. XELODA [Suspect]
     Indication: RECTAL CANCER METASTATIC
     Route: 048
     Dates: start: 20130711, end: 20130724
  14. XELODA [Suspect]
     Indication: RECTAL CANCER METASTATIC
     Route: 048
     Dates: start: 20130801, end: 20130811
  15. AVASTIN [Suspect]
     Indication: RECTAL CANCER METASTATIC
     Route: 041
     Dates: start: 20121227, end: 20130801
  16. ELPLAT [Concomitant]
     Indication: RECTAL CANCER METASTATIC
     Route: 041
     Dates: start: 20121204, end: 20130801
  17. GRANISETRON [Concomitant]
     Route: 019
     Dates: start: 20121204, end: 20130228
  18. GRANISETRON [Concomitant]
     Route: 019
     Dates: start: 20130307, end: 20130801
  19. DEXART [Concomitant]
     Route: 019
     Dates: start: 20121204, end: 20130801
  20. CALCICOL [Concomitant]
     Route: 019
     Dates: start: 20121204, end: 20130801
  21. GLUCOSE [Concomitant]
     Route: 019
     Dates: start: 20121204, end: 20130801
  22. PYDOXAL [Concomitant]
     Route: 048
     Dates: start: 20121204, end: 20130801
  23. EMEND [Concomitant]
     Route: 048
     Dates: start: 20121204, end: 20130801
  24. MAGMITT [Concomitant]
     Route: 048
     Dates: start: 20121207, end: 20121230
  25. MAGMITT [Concomitant]
     Route: 048
     Dates: start: 20130307, end: 20130327
  26. LOXOPROFEN [Concomitant]
     Indication: PAIN
     Route: 048
     Dates: start: 20130711
  27. SELBEX [Concomitant]
     Route: 048
  28. DECADRON [Concomitant]
     Route: 048

REACTIONS (4)
  - Gastrointestinal perforation [Not Recovered/Not Resolved]
  - Ileus [Unknown]
  - Palmar-plantar erythrodysaesthesia syndrome [Recovered/Resolved]
  - Constipation [Recovered/Resolved]
